FAERS Safety Report 23031635 (Version 1)
Quarter: 2023Q4

REPORT INFORMATION
  Report Type: Spontaneous
  Country: US (occurrence: US)
  Receive Date: 20231005
  Receipt Date: 20231005
  Transmission Date: 20240110
  Serious: No
  Sender: FDA-Public Use
  Company Number: US-Bion-012170

PATIENT
  Age: 80 Year
  Sex: Female

DRUGS (1)
  1. LOPERAMIDE HYDROCHLORIDE [Suspect]
     Active Substance: LOPERAMIDE HYDROCHLORIDE
     Indication: Malignant anorectal neoplasm
     Dosage: 2 SOFT GELS
     Dates: start: 20190928

REACTIONS (1)
  - Intentional product misuse [Unknown]
